FAERS Safety Report 25395835 (Version 1)
Quarter: 2025Q2

REPORT INFORMATION
  Report Type: Spontaneous
  Country: US (occurrence: US)
  Receive Date: 20250604
  Receipt Date: 20250604
  Transmission Date: 20250716
  Serious: Yes (Other)
  Sender: JOHNSON AND JOHNSON
  Company Number: US-JNJFOC-20250535063

PATIENT
  Age: 78 Year
  Sex: Male

DRUGS (1)
  1. CARVYKTI [Suspect]
     Active Substance: CILTACABTAGENE AUTOLEUCEL
     Indication: Product used for unknown indication
     Dates: start: 20250203

REACTIONS (4)
  - Neuropathy peripheral [Unknown]
  - Cervical spinal stenosis [Unknown]
  - Neurotoxicity [Unknown]
  - Personality disorder [Recovered/Resolved]
